FAERS Safety Report 7414271-0 (Version None)
Quarter: 2011Q2

REPORT INFORMATION
  Report Type: 
  Country: None (occurrence: None)
  Receive Date: 20110411
  Receipt Date: 20110411
  Transmission Date: 20111010
  Serious: Yes (Death, Life-Threatening, Hospitalization, Disabling, Congenital Anomaly, Other)
  Sender: FDA-Public Use
  Company Number: None

PATIENT
  Age: 26 Year
  Sex: Female
  Weight: 98.8842 kg

DRUGS (1)
  1. CIPROFLOXACIN [Suspect]
     Indication: CHRONIC SINUSITIS
     Dosage: 20 MG 2 A DAY PO
     Route: 048
     Dates: start: 20110321, end: 20110331

REACTIONS (4)
  - MUSCLE TIGHTNESS [None]
  - ARTHRALGIA [None]
  - MUSCLE STRAIN [None]
  - GAIT DISTURBANCE [None]
